FAERS Safety Report 24031328 (Version 1)
Quarter: 2024Q2

REPORT INFORMATION
  Report Type: Spontaneous
  Country: JP (occurrence: JP)
  Receive Date: 20240629
  Receipt Date: 20240629
  Transmission Date: 20240715
  Serious: Yes (Death, Congenital Anomaly, Other)
  Sender: FDA-Public Use
  Company Number: JP-BRISTOL-MYERS SQUIBB COMPANY-2024-102990

PATIENT
  Age: 74 Year
  Sex: Male

DRUGS (10)
  1. VIDAZA [Suspect]
     Active Substance: AZACITIDINE
     Indication: Myelodysplastic syndrome
     Dosage: 1
     Route: 042
     Dates: start: 202205
  2. VIDAZA [Suspect]
     Active Substance: AZACITIDINE
     Indication: Acute myeloid leukaemia
     Dosage: 1
     Route: 042
     Dates: start: 2023, end: 2023
  3. CYTARABINE [Suspect]
     Active Substance: CYTARABINE
     Indication: Myelodysplastic syndrome
     Dates: start: 2024, end: 2024
  4. CYTARABINE [Suspect]
     Active Substance: CYTARABINE
     Indication: Acute myeloid leukaemia
  5. VENETOCLAX [Concomitant]
     Active Substance: VENETOCLAX
     Indication: Acute myeloid leukaemia
     Dates: start: 2023, end: 2023
  6. PLATELETS [Concomitant]
     Active Substance: HUMAN PLATELET, ALLOGENIC
     Indication: Platelet count decreased
  7. HYDREA [Concomitant]
     Active Substance: HYDROXYUREA
     Indication: Acute myeloid leukaemia
     Dates: start: 2024, end: 2024
  8. ACLARUBICIN HYDROCHLORIDE [Concomitant]
     Active Substance: ACLARUBICIN HYDROCHLORIDE
     Indication: Acute myeloid leukaemia
     Dates: start: 2024, end: 2024
  9. CYTARABINE OCFOSFATE [Concomitant]
     Active Substance: CYTARABINE OCFOSFATE
     Indication: Acute myeloid leukaemia
     Dates: start: 2024, end: 2024
  10. XOSPATA [Concomitant]
     Active Substance: GILTERITINIB
     Indication: Acute myeloid leukaemia
     Dates: start: 202312

REACTIONS (10)
  - Transformation to acute myeloid leukaemia [Unknown]
  - Acute myeloid leukaemia [Fatal]
  - Cerebral haemorrhage [Fatal]
  - Thrombocytopenia [Unknown]
  - Brain oedema [Unknown]
  - Mouth haemorrhage [Unknown]
  - Pulmonary alveolar haemorrhage [Unknown]
  - Leukaemic infiltration pulmonary [Unknown]
  - Haematoma [Unknown]
  - White blood cell count increased [Unknown]

NARRATIVE: CASE EVENT DATE: 20230701
